FAERS Safety Report 4954539-0 (Version None)
Quarter: 2006Q1

REPORT INFORMATION
  Report Type: 
  Country: None (occurrence: None)
  Receive Date: 20060322
  Receipt Date: 20060306
  Transmission Date: 20060701
  Serious: Yes (Hospitalization)
  Sender: FDA-Public Use
  Company Number: 223204

PATIENT
  Age: 44 Year
  Sex: Female
  Weight: 39.2 kg

DRUGS (8)
  1. AVASTIN [Suspect]
     Indication: COLORECTAL CANCER METASTATIC
     Dosage: 175 MG, Q2W, INTRAVENOUS
     Route: 042
     Dates: start: 20051104
  2. IRINOTECAN HCL [Suspect]
     Indication: COLORECTAL CANCER METASTATIC
     Dosage: 170 MG, Q2W, INTRAVENOUS
     Route: 042
     Dates: start: 20051104
  3. FLUOROURACIL [Suspect]
     Indication: COLORECTAL CANCER METASTATIC
     Dosage: 2270 MG, Q2W, INTRAVENOUS
     Route: 042
     Dates: start: 20051104
  4. LEUCOVORIN CALCIUM [Suspect]
     Indication: COLORECTAL CANCER METASTATIC
     Dosage: 190 MG, Q2W, INTRAVENOUS
     Route: 042
     Dates: start: 20051104
  5. TRANSAMIN (TRANEXAMIC ACID) [Concomitant]
  6. FERROUS FUMARATE [Concomitant]
  7. LIVER EXTRACT (LIVER EXTRACT) [Concomitant]
  8. VITAMIN B (VITAMIN B NOS) [Concomitant]

REACTIONS (2)
  - ANAEMIA [None]
  - MENORRHAGIA [None]
